FAERS Safety Report 4588050-6 (Version None)
Quarter: 2005Q1

REPORT INFORMATION
  Report Type: 
  Country: None (occurrence: None)
  Receive Date: 20050216
  Receipt Date: 20050201
  Transmission Date: 20050727
  Serious: Yes (Death)
  Sender: FDA-Public Use
  Company Number: DE_050215185

PATIENT
  Age: 4 Year
  Sex: Female
  Weight: 28 kg

DRUGS (1)
  1. ZYPREXA [Suspect]
     Dosage: 5 MG

REACTIONS (3)
  - ASPHYXIA [None]
  - MEDICATION ERROR [None]
  - SELF-MEDICATION [None]
